FAERS Safety Report 6990332-5 (Version None)
Quarter: 2010Q3

REPORT INFORMATION
  Report Type: 
  Country: None (occurrence: None)
  Receive Date: 20100916
  Receipt Date: 20100607
  Transmission Date: 20110219
  Serious: Yes (Other)
  Sender: FDA-Public Use
  Company Number: SE-PFIZER INC-2010052799

PATIENT
  Sex: Male

DRUGS (12)
  1. LYRICA [Suspect]
     Indication: NEURALGIA
     Dosage: 100 MG, 1X/DAY
     Route: 048
     Dates: start: 20090701, end: 20090101
  2. LYRICA [Suspect]
     Dosage: 100 MG, 2X/DAY
     Dates: start: 20090101, end: 20090801
  3. TEGRETOL [Concomitant]
     Dosage: UNK
  4. GLIBENCLAMIDE [Concomitant]
     Dosage: UNK
  5. AMLODIPINE [Concomitant]
     Dosage: UNK
  6. ATENOLAN [Concomitant]
     Dosage: UNK
  7. TRADOLAN [Concomitant]
     Dosage: UNK
  8. ALVEDON FORTE [Concomitant]
     Dosage: 1 G, 4X/DAY
  9. OXASCAND [Concomitant]
     Dosage: UNK
  10. ZOPICLONE [Concomitant]
     Dosage: UNK
  11. WARAN [Concomitant]
     Dosage: UNK
  12. AMITRIPTYLINE HCL [Concomitant]
     Dosage: 10 MG, 1X/DAY

REACTIONS (3)
  - DYSSTASIA [None]
  - GAIT DISTURBANCE [None]
  - MUSCLE TWITCHING [None]
